FAERS Safety Report 23443807 (Version 2)
Quarter: 2024Q2

REPORT INFORMATION
  Report Type: Spontaneous
  Country: US (occurrence: US)
  Receive Date: 20240125
  Receipt Date: 20240413
  Transmission Date: 20240716
  Serious: No
  Sender: FDA-Public Use
  Company Number: US-SA-SAC20240119001108

PATIENT
  Age: 3 Year
  Sex: Male

DRUGS (1)
  1. DUPIXENT [Suspect]
     Active Substance: DUPILUMAB
     Indication: Neurodermatitis
     Dosage: 200 MG, Q4W
     Route: 058

REACTIONS (8)
  - Condition aggravated [Not Recovered/Not Resolved]
  - Eye discharge [Unknown]
  - Dry skin [Recovering/Resolving]
  - Flushing [Unknown]
  - Erythema [Not Recovered/Not Resolved]
  - Ocular hyperaemia [Not Recovered/Not Resolved]
  - Pruritus [Unknown]
  - Injection site swelling [Recovered/Resolved]
